FAERS Safety Report 7986288-9 (Version None)
Quarter: 2011Q4

REPORT INFORMATION
  Report Type: 
  Country: None (occurrence: None)
  Receive Date: 20111216
  Receipt Date: 20110124
  Transmission Date: 20120403
  Serious: No
  Sender: FDA-Public Use
  Company Number: US-BRISTOL-MYERS SQUIBB COMPANY-15509615

PATIENT
  Age: 8 Year
  Sex: Female

DRUGS (3)
  1. SEROQUEL [Suspect]
  2. TOPAMAX [Suspect]
     Dates: start: 20100501
  3. ABILIFY [Suspect]
     Indication: BIPOLAR DISORDER
     Dates: start: 20100401

REACTIONS (1)
  - WEIGHT INCREASED [None]
